FAERS Safety Report 14860000 (Version 2)
Quarter: 2018Q2

REPORT INFORMATION
  Report Type: Spontaneous
  Country: US (occurrence: US)
  Receive Date: 20180508
  Receipt Date: 20180629
  Transmission Date: 20180711
  Serious: Yes (Other)
  Sender: FDA-Public Use
  Company Number: US-JNJFOC-20180504765

PATIENT
  Age: 63 Year
  Sex: Female

DRUGS (1)
  1. INVOKANA [Suspect]
     Active Substance: CANAGLIFLOZIN
     Indication: TYPE 2 DIABETES MELLITUS
     Route: 048
     Dates: start: 20150216

REACTIONS (4)
  - Extremity necrosis [Unknown]
  - Skin ulcer [Unknown]
  - Osteomyelitis acute [Unknown]
  - Toe amputation [Unknown]

NARRATIVE: CASE EVENT DATE: 20160328
